FAERS Safety Report 8380366-0 (Version None)
Quarter: 2012Q2

REPORT INFORMATION
  Report Type: 
  Country: None (occurrence: None)
  Receive Date: 20120522
  Receipt Date: 20111207
  Transmission Date: 20120825
  Serious: Yes (Other)
  Sender: FDA-Public Use
  Company Number: 2011-12019

PATIENT
  Sex: Female

DRUGS (1)
  1. THERACYS [Suspect]
     Indication: ACCIDENTAL EXPOSURE
     Dosage: NR

REACTIONS (3)
  - INJECTION SITE ERYTHEMA [None]
  - ACCIDENTAL EXPOSURE [None]
  - ADVERSE EVENT [None]
